FAERS Safety Report 7943288-2 (Version None)
Quarter: 2011Q4

REPORT INFORMATION
  Report Type: 
  Country: None (occurrence: None)
  Receive Date: 20111128
  Receipt Date: 20111121
  Transmission Date: 20120403
  Serious: Yes (Hospitalization, Other)
  Sender: FDA-Public Use
  Company Number: GB-B.I. PHARMACEUTICALS,INC./RIDGEFIELD-2011-UK-01167UK

PATIENT
  Age: 72 Year
  Sex: Male
  Weight: 91 kg

DRUGS (11)
  1. PRADAXA [Suspect]
     Indication: ANTICOAGULANT THERAPY
     Dosage: 300 MG
     Route: 048
     Dates: start: 20111007, end: 20111013
  2. FENOFIBRATE [Concomitant]
     Indication: ANGINA PECTORIS
     Dosage: 267 MG
     Route: 048
     Dates: start: 20020213
  3. VALSARTAN [Concomitant]
     Indication: HYPERTENSION
     Dosage: 80 MG
     Route: 048
     Dates: start: 20080325
  4. LANSOPRAZOLE [Concomitant]
     Indication: PROPHYLAXIS
     Dosage: 15 MG
     Route: 048
     Dates: start: 20110330
  5. ROSUVASTATIN [Concomitant]
     Indication: ANGINA PECTORIS
     Dosage: 10 MG
     Route: 048
     Dates: start: 20040116
  6. FENOFIBRATE [Concomitant]
     Indication: MYOCARDIAL ISCHAEMIA
  7. ROSUVASTATIN [Concomitant]
     Indication: MYOCARDIAL ISCHAEMIA
  8. ATENOLOL [Concomitant]
     Indication: ATRIAL FIBRILLATION
  9. WARFARIN SODIUM [Concomitant]
     Indication: ATRIAL FIBRILLATION
     Dosage: VARIABLE
     Route: 048
     Dates: start: 20100915, end: 20111003
  10. ATENOLOL [Concomitant]
     Indication: ANGINA PECTORIS
     Dosage: 25 MG
     Route: 048
     Dates: start: 20101101
  11. ISMN [Concomitant]
     Indication: ANGINA PECTORIS
     Dosage: 120 MG
     Route: 048
     Dates: start: 20030918

REACTIONS (2)
  - COLONIC POLYP [None]
  - RECTAL HAEMORRHAGE [None]
